FAERS Safety Report 16874886 (Version 2)
Quarter: 2019Q4

REPORT INFORMATION
  Report Type: Report from Study
  Country: US (occurrence: US)
  Receive Date: 20191001
  Receipt Date: 20191022
  Transmission Date: 20200122
  Serious: Yes (Hospitalization, Other)
  Sender: FDA-Public Use
  Company Number: US-ALEXION PHARMACEUTICALS INC.-A201914223

PATIENT
  Sex: Female

DRUGS (1)
  1. ULTOMIRIS [Suspect]
     Active Substance: RAVULIZUMAB-CWVZ
     Indication: PAROXYSMAL NOCTURNAL HAEMOGLOBINURIA
     Dosage: UNK
     Route: 042
     Dates: start: 20190716

REACTIONS (9)
  - Pulmonary congestion [Recovered/Resolved]
  - Cough [Unknown]
  - Haemoglobin decreased [Not Recovered/Not Resolved]
  - Rib fracture [Recovered/Resolved]
  - Cystitis [Not Recovered/Not Resolved]
  - Skin laceration [Recovered/Resolved]
  - Diverticulitis [Unknown]
  - Fall [Recovered/Resolved]
  - Seasonal allergy [Not Recovered/Not Resolved]
